FAERS Safety Report 18218992 (Version 1)
Quarter: 2020Q3

REPORT INFORMATION
  Report Type: Spontaneous
  Country: US (occurrence: US)
  Receive Date: 20200901
  Receipt Date: 20200901
  Transmission Date: 20201103
  Serious: Yes (Other)
  Sender: FDA-Public Use
  Company Number: US-INCYTE CORPORATION-2020IN007236

PATIENT

DRUGS (2)
  1. JAKAFI [Suspect]
     Active Substance: RUXOLITINIB
     Dosage: 10 MG (EVERY EVENING)
     Route: 065
  2. JAKAFI [Suspect]
     Active Substance: RUXOLITINIB
     Indication: GROWTH FAILURE
     Dosage: 12.5 MG, BID
     Route: 065

REACTIONS (3)
  - Transaminases increased [Unknown]
  - Thrombocytopenia [Unknown]
  - Product use in unapproved indication [Unknown]
